FAERS Safety Report 23061696 (Version 2)
Quarter: 2023Q4

REPORT INFORMATION
  Report Type: Spontaneous
  Country: US (occurrence: US)
  Receive Date: 20231013
  Receipt Date: 20231017
  Transmission Date: 20240110
  Serious: No
  Sender: FDA-Public Use
  Company Number: US-ABBVIE-5445282

PATIENT
  Age: 36 Year
  Sex: Female
  Weight: 101 kg

DRUGS (2)
  1. SAVELLA [Suspect]
     Active Substance: MILNACIPRAN HYDROCHLORIDE
     Indication: Fibromyalgia
     Route: 048
     Dates: start: 202308
  2. TYLENOL [Concomitant]
     Active Substance: ACETAMINOPHEN
     Indication: Headache
     Route: 048
     Dates: start: 20231002, end: 20231002

REACTIONS (2)
  - Maternal exposure during pregnancy [Unknown]
  - Headache [Unknown]
